FAERS Safety Report 9743179 (Version 1)
Quarter: 2013Q4

REPORT INFORMATION
  Report Type: Spontaneous
  Country: US (occurrence: US)
  Receive Date: 20131210
  Receipt Date: 20131210
  Transmission Date: 20140711
  Serious: No
  Sender: FDA-Public Use
  Company Number: US-GILEAD-2009-0024887

PATIENT
  Sex: Female

DRUGS (18)
  1. LETAIRIS [Suspect]
     Indication: PULMONARY ARTERIAL HYPERTENSION
     Route: 048
     Dates: start: 20080922
  2. FLOLAN [Concomitant]
  3. VIAGRA [Concomitant]
  4. LANOXIN [Concomitant]
  5. FUROSEMIDE [Concomitant]
  6. ALDACTONE [Concomitant]
  7. PREDNISONE [Concomitant]
  8. AZATHIOPRINE [Concomitant]
  9. ACETAMINOPHEN/CODEINE [Concomitant]
  10. CLONAZEPAM [Concomitant]
  11. ULTRACET [Concomitant]
  12. DARVOCET A500 [Concomitant]
  13. SOMA [Concomitant]
  14. DANAZOL [Concomitant]
  15. AMBIEN [Concomitant]
  16. EFFEXOR [Concomitant]
  17. PLAQUENIL [Concomitant]
  18. HYDROXYCHLOROQUINE [Concomitant]

REACTIONS (1)
  - Contusion [Not Recovered/Not Resolved]
